FAERS Safety Report 4416774-X (Version None)
Quarter: 2004Q3

REPORT INFORMATION
  Report Type: 
  Country: None (occurrence: None)
  Receive Date: 20040802
  Receipt Date: 20040729
  Transmission Date: 20050211
  Serious: Yes (Hospitalization)
  Sender: FDA-Public Use
  Company Number: LTI2004A00153

PATIENT
  Age: 72 Year
  Sex: Male

DRUGS (7)
  1. LEUPRORELIN DEPOT (3M) (LEUPROLIDE ACETATE) (11.25 MILLIGRAM, INJECTIO [Suspect]
     Indication: PROSTATE CANCER
     Dosage: 11.25 MG (11.25 MG, 1 IN 3 M)
     Route: 058
     Dates: start: 20031031
  2. FLUTAMIDE [Concomitant]
  3. CAPTOPRIL [Concomitant]
  4. LASIX [Concomitant]
  5. ATROVENT [Concomitant]
  6. SYMBICORT (SYMBICORT TURBUHALER ^DRACO^) [Concomitant]
  7. OMEPRAZOLE [Concomitant]

REACTIONS (2)
  - DYSPHONIA [None]
  - LARYNGEAL CANCER [None]
